FAERS Safety Report 7171167 (Version 2)
Quarter: 2014Q2

REPORT INFORMATION
  Report Type: Spontaneous
  Country: FR (occurrence: None)
  Receive Date: 20091023
  Receipt Date: 20140415
  Transmission Date: 20141212
  Serious: Yes (Hospitalization)
  Sender: FDA-Public Use
  Company Number: AUR-APU-2009-00992

PATIENT
  Age: 75 Year
  Sex: Male

DRUGS (1)
  1. LEVETIRACETAM [Suspect]
     Indication: CONVULSION
     Dosage: 1G, DAILY

REACTIONS (4)
  - Platelet aggregation abnormal [None]
  - Cerebral amyloid angiopathy [None]
  - Cerebral haemorrhage [None]
  - Platelet dysfunction [None]
